FAERS Safety Report 4723578-7 (Version None)
Quarter: 2005Q3

REPORT INFORMATION
  Report Type: 
  Country: None (occurrence: None)
  Receive Date: 20050719
  Receipt Date: 20050711
  Transmission Date: 20060218
  Serious: Yes (Death)
  Sender: FDA-Public Use
  Company Number: OCTA-ALB25-01-S700

PATIENT
  Sex: Male
  Weight: 57 kg

DRUGS (7)
  1. ALBUMIN (HUMAN) [Suspect]
     Indication: BLOOD ALBUMIN ABNORMAL
     Dosage: 32.8 GM IV
     Route: 042
     Dates: start: 20050512
  2. ASACOL [Concomitant]
  3. LOMOTIL [Concomitant]
  4. IMODIUM [Concomitant]
  5. FUROSEMIDE [Concomitant]
  6. SPIRONOLACTONE [Concomitant]
  7. POTASSIUM CHLORIDE [Concomitant]

REACTIONS (1)
  - CIRRHOSIS ALCOHOLIC [None]
